FAERS Safety Report 24011143 (Version 1)
Quarter: 2024Q2

REPORT INFORMATION
  Report Type: Report from Study
  Country: US (occurrence: US)
  Receive Date: 20240625
  Receipt Date: 20240625
  Transmission Date: 20240715
  Serious: Yes (Other)
  Sender: FDA-Public Use
  Company Number: US-UCBSA-2024031088

PATIENT
  Age: 67 Year
  Sex: Female

DRUGS (4)
  1. CERTOLIZUMAB PEGOL [Suspect]
     Active Substance: CERTOLIZUMAB PEGOL
     Indication: Rheumatoid arthritis
     Dosage: UNK (STARTED 7 YEARS AGO)
     Dates: start: 2017
  2. CERTOLIZUMAB PEGOL [Suspect]
     Active Substance: CERTOLIZUMAB PEGOL
     Dosage: 400 MILLIGRAM ((2 X 200MG/ML)), EV 4 WEEKS
     Route: 058
     Dates: start: 20210111
  3. CIPRO [Concomitant]
     Active Substance: CIPROFLOXACIN\CIPROFLOXACIN HYDROCHLORIDE
     Indication: Product used for unknown indication
     Dosage: 500 MILLIGRAM, 2X/DAY (BID)
     Route: 048
     Dates: start: 20240122
  4. LISINOPRIL [Concomitant]
     Active Substance: LISINOPRIL
     Indication: Product used for unknown indication
     Dosage: 30 MILLIGRAM, ONCE DAILY (QD)
     Route: 048
     Dates: start: 20200416

REACTIONS (18)
  - Rheumatoid arthritis [Unknown]
  - Skin cancer [Unknown]
  - Lupus-like syndrome [Unknown]
  - Surgery [Unknown]
  - Rash [Unknown]
  - Osteopenia [Unknown]
  - Gouty arthritis [Unknown]
  - Arthropathy [Unknown]
  - Osteoarthritis [Unknown]
  - Tenosynovitis [Unknown]
  - Tendonitis [Unknown]
  - Histone antibody positive [Unknown]
  - Immunosuppressant drug therapy [Unknown]
  - White blood cells urine positive [Unknown]
  - Dysuria [Unknown]
  - Migraine [Unknown]
  - Fatigue [Unknown]
  - Essential hypertension [Unknown]

NARRATIVE: CASE EVENT DATE: 20181118
